FAERS Safety Report 12612931 (Version 2)
Quarter: 2016Q3

REPORT INFORMATION
  Report Type: Spontaneous
  Country: GB (occurrence: GB)
  Receive Date: 20160802
  Receipt Date: 20160802
  Transmission Date: 20161109
  Serious: Yes (Other)
  Sender: FDA-Public Use
  Company Number: GB-CIPLA LTD.-2016GB10219

PATIENT

DRUGS (3)
  1. PAROXETINE. [Concomitant]
     Active Substance: PAROXETINE
     Dosage: 2 DF, QD, IN THE MORNING OR AS DIRECTED
     Route: 065
     Dates: start: 20151005
  2. PERINDOPRIL ERBUMINE. [Concomitant]
     Active Substance: PERINDOPRIL ERBUMINE
     Dosage: 1 DF, QD
     Route: 065
     Dates: start: 20160713
  3. AMLODIPINE [Suspect]
     Active Substance: AMLODIPINE BESYLATE
     Dosage: UNK
     Route: 065
     Dates: start: 20160713

REACTIONS (2)
  - Rash macular [Recovered/Resolved]
  - Drug eruption [Recovered/Resolved]

NARRATIVE: CASE EVENT DATE: 20160713
